FAERS Safety Report 25241944 (Version 1)
Quarter: 2025Q2

REPORT INFORMATION
  Report Type: Spontaneous
  Country: US (occurrence: US)
  Receive Date: 20250426
  Receipt Date: 20250426
  Transmission Date: 20250717
  Serious: Yes (Other)
  Sender: AMGEN
  Company Number: US-AMGEN-USASP2025077503

PATIENT
  Age: 71 Year
  Sex: Female

DRUGS (2)
  1. PREDNISONE [Suspect]
     Active Substance: PREDNISONE
     Indication: Rheumatoid arthritis
     Dosage: 10 MILLIGRAM, QD
     Route: 065
  2. ASPIRIN [Concomitant]
     Active Substance: ASPIRIN
     Dosage: 325 MILLIGRAM, QD
     Route: 065

REACTIONS (6)
  - Oesophageal disorder [Recovered/Resolved]
  - Conjunctival pallor [Unknown]
  - Abdominal tenderness [Unknown]
  - Hand deformity [Unknown]
  - Haemoglobin decreased [Unknown]
  - Gastrointestinal ulcer [Unknown]
